FAERS Safety Report 18166698 (Version 2)
Quarter: 2021Q4

REPORT INFORMATION
  Report Type: Report from Study
  Country: JP (occurrence: JP)
  Receive Date: 20200819
  Receipt Date: 20211011
  Transmission Date: 20220303
  Serious: Yes (Hospitalization)
  Sender: FDA-Public Use
  Company Number: JP-RECORDATI RARE DISEASES INC.-JP-R13005-20-00102

PATIENT
  Sex: Female
  Weight: .83 kg

DRUGS (15)
  1. NEOPROFEN [Suspect]
     Active Substance: IBUPROFEN LYSINE
     Indication: Patent ductus arteriosus
     Dosage: 10 MILLIGRAM, QD
     Route: 042
     Dates: start: 20191220, end: 20191220
  2. NEOPROFEN [Suspect]
     Active Substance: IBUPROFEN LYSINE
     Dosage: 5 MILLIGRAM, QD
     Route: 042
     Dates: start: 20191221, end: 20191221
  3. NEOPROFEN [Suspect]
     Active Substance: IBUPROFEN LYSINE
     Dosage: 5 MILLIGRAM, QD
     Route: 042
     Dates: start: 20191222, end: 20191222
  4. NEOPROFEN [Suspect]
     Active Substance: IBUPROFEN LYSINE
     Dosage: 10 MILLIGRAM, QD
     Route: 042
     Dates: start: 20200114, end: 20200114
  5. NEOPROFEN [Suspect]
     Active Substance: IBUPROFEN LYSINE
     Dosage: 5 MILLIGRAM, QD
     Route: 042
     Dates: start: 20200115, end: 20200115
  6. NEOPROFEN [Suspect]
     Active Substance: IBUPROFEN LYSINE
     Dosage: 5 MILLIGRAM, QD
     Route: 042
     Dates: start: 20200116, end: 20200116
  7. VICCILLIN [AMPICILLIN SODIUM] [Concomitant]
     Indication: Intrauterine infection
     Dosage: UNK UNK, UNK
     Route: 042
     Dates: start: 20191218, end: 20191220
  8. MICAFUNGIN SODIUM [Concomitant]
     Active Substance: MICAFUNGIN SODIUM
     Indication: Infection prophylaxis
     Dosage: UNK UNK, UNK
     Route: 042
     Dates: start: 20191218, end: 20200108
  9. CAFFEINE [Concomitant]
     Active Substance: CAFFEINE
     Indication: Infantile apnoea
     Dosage: UNK UNK, UNK
     Route: 042
     Dates: start: 20191220, end: 20200120
  10. INOVAN [DOPAMINE HYDROCHLORIDE] [Concomitant]
     Indication: Circulatory collapse
     Dosage: UNK UNK, UNK
     Route: 042
     Dates: start: 20191218, end: 20200123
  11. DOBUTREX [Concomitant]
     Active Substance: DOBUTAMINE HYDROCHLORIDE
     Indication: Circulatory collapse
     Dosage: UNK UNK, UNK
     Route: 042
     Dates: start: 20191218, end: 20200123
  12. MEROPENEM [Concomitant]
     Active Substance: MEROPENEM
     Indication: Device related infection
     Dosage: UNK UNK, UNK
     Route: 042
     Dates: start: 20200111, end: 20200114
  13. VANCOMYCIN [Concomitant]
     Active Substance: VANCOMYCIN
     Indication: Device related infection
     Dosage: UNK UNK, UNK
     Route: 042
     Dates: start: 20200110, end: 20200123
  14. EPOETIN ALFA BS [Concomitant]
     Active Substance: ERYTHROPOIETIN
     Indication: Anaemia neonatal
     Dosage: UNK UNK, UNK
     Route: 058
     Dates: start: 20200114, end: 20200310
  15. CEFEPIME [Concomitant]
     Active Substance: CEFEPIME HYDROCHLORIDE
     Indication: Device related infection
     Dosage: UNK UNK, UNK
     Route: 042
     Dates: start: 20200114, end: 20200203

REACTIONS (1)
  - Renal disorder [Recovering/Resolving]

NARRATIVE: CASE EVENT DATE: 20191222
